FAERS Safety Report 23347485 (Version 2)
Quarter: 2024Q1

REPORT INFORMATION
  Report Type: Report from Study
  Country: US (occurrence: US)
  Receive Date: 20231228
  Receipt Date: 20240105
  Transmission Date: 20240409
  Serious: No
  Sender: FDA-Public Use
  Company Number: US-SA-SAC20231226000912

PATIENT
  Age: 68 Year
  Sex: Male

DRUGS (4)
  1. DUPILUMAB [Suspect]
     Active Substance: DUPILUMAB
     Indication: Neurodermatitis
     Dosage: 600 MG, 1X
  2. DUPILUMAB [Suspect]
     Active Substance: DUPILUMAB
     Indication: Eczema
     Dosage: 300 MG, QOW
  3. MINOXIDIL [Suspect]
     Active Substance: MINOXIDIL
     Indication: Alopecia
     Dosage: UNK
     Route: 048
  4. MINOXIDIL [Suspect]
     Active Substance: MINOXIDIL
     Indication: Condition aggravated

REACTIONS (4)
  - Alopecia [Unknown]
  - Condition aggravated [Unknown]
  - Abdominal discomfort [Unknown]
  - Drug ineffective [Unknown]
